FAERS Safety Report 14180927 (Version 1)
Quarter: 2017Q4

REPORT INFORMATION
  Report Type: Spontaneous
  Country: US (occurrence: US)
  Receive Date: 20171110
  Receipt Date: 20171110
  Transmission Date: 20180321
  Serious: Yes (Hospitalization)
  Sender: FDA-Public Use
  Company Number: None

PATIENT
  Age: 41 Year
  Sex: Male

DRUGS (2)
  1. BUPIVACAINE INJECTION 10MG/ML [Concomitant]
     Active Substance: BUPIVACAINE
  2. VANCOMYCIN [Suspect]
     Active Substance: VANCOMYCIN
     Dosage: INTRAVENOUS (NOT OTHERWISE SPECIFIED)
     Route: 042
     Dates: start: 20171109, end: 20171109

REACTIONS (2)
  - Erythema [None]
  - Pruritus [None]

NARRATIVE: CASE EVENT DATE: 20171109
